FAERS Safety Report 24834945 (Version 1)
Quarter: 2025Q1

REPORT INFORMATION
  Report Type: Spontaneous
  Country: US (occurrence: US)
  Receive Date: 20250113
  Receipt Date: 20250113
  Transmission Date: 20250409
  Serious: Yes (Other)
  Sender: TAKEDA
  Company Number: US-TAKEDA-2025TUS001644

PATIENT
  Age: 49 Year

DRUGS (2)
  1. LIALDA [Suspect]
     Active Substance: MESALAMINE
     Indication: Colitis ulcerative
     Dosage: UNK UNK, BID
  2. PENTASA [Suspect]
     Active Substance: MESALAMINE
     Indication: Colitis ulcerative
     Dosage: UNK UNK, BID

REACTIONS (7)
  - Rheumatoid arthritis [Unknown]
  - Colitis ulcerative [Unknown]
  - Pain [Unknown]
  - Rash macular [Unknown]
  - Drug ineffective [Unknown]
  - Rash [Unknown]
  - Muscle spasms [Unknown]
